FAERS Safety Report 4537178-5 (Version None)
Quarter: 2004Q4

REPORT INFORMATION
  Report Type: 
  Country: None (occurrence: None)
  Receive Date: 20041223
  Receipt Date: 20041221
  Transmission Date: 20050328
  Serious: Yes (Hospitalization)
  Sender: FDA-Public Use
  Company Number: PHHO2004DE18219

PATIENT
  Age: 64 Year
  Sex: Male
  Weight: 82 kg

DRUGS (6)
  1. NEORAL [Suspect]
     Indication: RENAL TRANSPLANT
     Dosage: NOT REPORTED
     Route: 048
     Dates: start: 20041202
  2. SULFAMETHOXAZOLE AND TRIMETHOPRIM [Suspect]
     Dosage: 1 X 480 MG
     Route: 048
     Dates: start: 20041202, end: 20041220
  3. LASIX [Suspect]
     Dosage: NOT REPORTED
     Route: 048
     Dates: start: 20041202, end: 20041214
  4. FTY720 VS MYCOPHENOLATE MOFETIL [Suspect]
     Indication: RENAL TRANSPLANT
     Dosage: CODE NOT BROKEN (FULL DOSE)
     Route: 048
     Dates: start: 20041216, end: 20041220
  5. FTY720 VS MYCOPHENOLATE MOFETIL [Suspect]
     Dosage: CODE NOT BROKEN (50% DOSE)
     Route: 048
     Dates: start: 20041209, end: 20041215
  6. FTY720 VS MYCOPHENOLATE MOFETIL [Suspect]
     Dosage: CODE NOT BROKEN
     Dates: start: 20041202, end: 20041208

REACTIONS (4)
  - BILIRUBIN CONJUGATED INCREASED [None]
  - BLOOD BILIRUBIN INCREASED [None]
  - HAEMOLYSIS [None]
  - HAPTOGLOBIN DECREASED [None]
